FAERS Safety Report 5676757-9 (Version None)
Quarter: 2008Q1

REPORT INFORMATION
  Report Type: 
  Country: None (occurrence: None)
  Receive Date: 20080318
  Receipt Date: 20080307
  Transmission Date: 20080703
  Serious: Yes (Death, Hospitalization)
  Sender: FDA-Public Use
  Company Number: 2008BI003346

PATIENT
  Sex: Male

DRUGS (1)
  1. TYSABRI [Suspect]
     Indication: MULTIPLE SCLEROSIS
     Dosage: ;IV
     Route: 042
     Dates: start: 20071108, end: 20071108

REACTIONS (4)
  - HAEMATOMA [None]
  - MULTIPLE SCLEROSIS [None]
  - PLEURAL EFFUSION [None]
  - RESPIRATORY FAILURE [None]
